FAERS Safety Report 24786724 (Version 1)
Quarter: 2024Q4

REPORT INFORMATION
  Report Type: Spontaneous
  Country: US (occurrence: US)
  Receive Date: 20241230
  Receipt Date: 20241230
  Transmission Date: 20250115
  Serious: No
  Sender: CELLTRION
  Company Number: US-CELLTRION INC.-2024US010647

PATIENT

DRUGS (7)
  1. RITUXIMAB [Suspect]
     Active Substance: RITUXIMAB
     Indication: Amyloidosis
     Dosage: SIX CYCLES OF CHEMOTHERAPY
  2. BORTEZOMIB [Suspect]
     Active Substance: BORTEZOMIB
     Indication: Amyloidosis
     Dosage: SIX CYCLES OF CHEMOTHERAPY
  3. DEXAMETHASONE [Suspect]
     Active Substance: DEXAMETHASONE
     Indication: Amyloidosis
     Dosage: SIX CYCLES OF CHEMOTHERAPY
  4. CYCLOPHOSPHAMIDE [Suspect]
     Active Substance: CYCLOPHOSPHAMIDE
     Indication: Amyloidosis
     Dosage: SIX CYCLES OF CHEMOTHERAPY
  5. DARATUMUMAB [Suspect]
     Active Substance: DARATUMUMAB
     Indication: Amyloidosis
     Dosage: 1800 MG FOR EIGHT WEEKLY DOSES INITIALLY, COMPRISING CYCLES 1 + 2, WITH EACH CYCLE^S DURATION BEING
     Route: 058
  6. DARATUMUMAB [Suspect]
     Active Substance: DARATUMUMAB
     Dosage: 1,800 MG ONCE EVERY TWO WEEKS FOR A TOTAL OF ANOTHER EIGHT DOSES (FOR CYCLES THREE TO SIX)
     Route: 058
  7. ACYCLOVIR [Concomitant]
     Active Substance: ACYCLOVIR
     Indication: Antiviral prophylaxis

REACTIONS (2)
  - Intentional product use issue [Unknown]
  - Therapy partial responder [Unknown]
